FAERS Safety Report 11431554 (Version 2)
Quarter: 2015Q3

REPORT INFORMATION
  Report Type: Report from Study
  Country: GB (occurrence: GB)
  Receive Date: 20150828
  Receipt Date: 20150911
  Transmission Date: 20151125
  Serious: Yes (Hospitalization)
  Sender: FDA-Public Use
  Company Number: GB-PFIZER INC-2015282937

PATIENT
  Age: 56 Year
  Sex: Male
  Weight: 117 kg

DRUGS (10)
  1. MST /00021210/ [Concomitant]
     Dosage: 30 MG, 2X/DAY
     Route: 048
     Dates: start: 20150730
  2. MST /00021210/ [Concomitant]
     Indication: PAIN
     Dosage: 60 MG, 2X/DAY
     Route: 048
     Dates: start: 20150722
  3. GLYCEROL [Concomitant]
     Active Substance: GLYCERIN
     Indication: CONSTIPATION
     Dosage: 700 MG, 2X/DAY
     Dates: start: 20150811
  4. METOCLOPRAMIDE. [Concomitant]
     Active Substance: METOCLOPRAMIDE
     Indication: NAUSEA
     Dosage: 10 MG, DAILY
     Route: 048
     Dates: start: 20150716
  5. PARACETAMOL [Concomitant]
     Active Substance: ACETAMINOPHEN
     Indication: PAIN
     Dosage: 500 MG, 4X/DAY
     Dates: start: 20150722
  6. CRIZOTINIB [Suspect]
     Active Substance: CRIZOTINIB
     Indication: COLORECTAL CANCER
     Dosage: 200 MG, 2X/DAY
     Route: 048
     Dates: start: 20150722, end: 20150820
  7. ZAPAIN [Concomitant]
     Active Substance: ACETAMINOPHEN\CODEINE PHOSPHATE
     Indication: PAIN
     Dosage: 30 MG, 2X/DAY
     Route: 048
     Dates: start: 20150722
  8. PD-325,901 [Suspect]
     Active Substance: INVESTIGATIONAL PRODUCT
     Indication: COLORECTAL CANCER
     Dosage: 4 MG, 2X/DAY (21 DAYS)
     Route: 048
     Dates: start: 20150715, end: 20150820
  9. LAXIDO [Concomitant]
     Active Substance: POLYETHYLENE GLYCOL 3350\POTASSIUM CHLORIDE\SODIUM BICARBONATE\SODIUM CHLORIDE
     Indication: CONSTIPATION
     Dosage: 1 DF, DAILY
     Route: 048
     Dates: start: 20150711
  10. PARACETAMOL [Concomitant]
     Active Substance: ACETAMINOPHEN
     Dosage: 1 G, 4X/DAY
     Route: 048
     Dates: start: 20150731

REACTIONS (1)
  - Wound infection [Recovering/Resolving]

NARRATIVE: CASE EVENT DATE: 20150820
